FAERS Safety Report 8044594-6 (Version None)
Quarter: 2012Q1

REPORT INFORMATION
  Report Type: 
  Country: None (occurrence: None)
  Receive Date: 20120113
  Receipt Date: 20120113
  Transmission Date: 20120608
  Serious: Yes (Other)
  Sender: FDA-Public Use
  Company Number: None

PATIENT
  Age: 60 Year
  Sex: Female
  Weight: 56.699 kg

DRUGS (1)
  1. CLONIDINE [Suspect]
     Indication: HYPERTENSION
     Dosage: 0.2 MG.DAY
     Route: 062
     Dates: start: 20111004, end: 20111010

REACTIONS (2)
  - DERMATITIS BULLOUS [None]
  - APPLICATION SITE RASH [None]
